FAERS Safety Report 7294396-3 (Version None)
Quarter: 2011Q1

REPORT INFORMATION
  Report Type: 
  Country: None (occurrence: None)
  Receive Date: 20110215
  Receipt Date: 20110211
  Transmission Date: 20110831
  Serious: Yes (Hospitalization, Other)
  Sender: FDA-Public Use
  Company Number: US-AMGEN-USASP2011003446

PATIENT
  Age: 7 Year
  Sex: Male
  Weight: 20.9 kg

DRUGS (5)
  1. NPLATE [Suspect]
     Indication: IDIOPATHIC THROMBOCYTOPENIC PURPURA
     Dosage: 7 A?G/KG, QWK
     Route: 058
     Dates: start: 20091210, end: 20101201
  2. BACTROBAN [Concomitant]
     Dosage: UNK
     Dates: start: 20110106
  3. MIRALAX [Concomitant]
     Dosage: UNK
     Dates: start: 20091124
  4. IMMUNOGLOBULINS [Concomitant]
  5. PREVACID [Concomitant]
     Dosage: 15 MG, QD
     Route: 048

REACTIONS (15)
  - PLATELET COUNT DECREASED [None]
  - TREATMENT NONCOMPLIANCE [None]
  - EVANS SYNDROME [None]
  - PETECHIAE [None]
  - PYREXIA [None]
  - CHILLS [None]
  - COLD AGGLUTININS POSITIVE [None]
  - INFLUENZA [None]
  - MYCOPLASMA INFECTION [None]
  - COUGH [None]
  - ANAEMIA HAEMOLYTIC AUTOIMMUNE [None]
  - ANTIBODY TEST POSITIVE [None]
  - THROMBOCYTOPENIA [None]
  - PALLOR [None]
  - RESPIRATORY TRACT CONGESTION [None]
